FAERS Safety Report 4873040-6 (Version None)
Quarter: 2005Q4

REPORT INFORMATION
  Report Type: 
  Country: None (occurrence: None)
  Receive Date: 20051201
  Receipt Date: 20050712
  Transmission Date: 20060501
  Serious: No
  Sender: FDA-Public Use
  Company Number: 2005PV000383

PATIENT
  Age: 65 Year
  Sex: Male
  Weight: 83.4619 kg

DRUGS (24)
  1. BYETTA [Suspect]
     Indication: DIABETES MELLITUS NON-INSULIN-DEPENDENT
     Dosage: 5 UG; BID; SC
     Route: 058
     Dates: start: 20050630
  2. NOVOLIN R [Concomitant]
  3. LANTUS [Concomitant]
  4. METFORMIN [Concomitant]
  5. FAMOTIDINE [Concomitant]
  6. ALTACE [Concomitant]
  7. PLAVIX [Concomitant]
  8. ASPIRIN [Concomitant]
  9. LIPITOR [Concomitant]
  10. GABAPENTIN [Concomitant]
  11. PAROXETINE HCL [Concomitant]
  12. PROSCAR [Concomitant]
  13. CIALIS [Concomitant]
  14. GINKO BILOBA [Concomitant]
  15. COENZYME Q10 [Concomitant]
  16. GLUOSAMINE HYDROCHLORIDE/CHONDROITIN SULFATE// MANGANESE ASCORBATE [Concomitant]
  17. FIBERCON [Concomitant]
  18. B1 COMPLEX [Concomitant]
  19. ASCORBIC ACID [Concomitant]
  20. POTASSIUM [Concomitant]
  21. QUERECTIN [Concomitant]
  22. ULTRAVITAMIN WITHOUT IRON [Concomitant]
  23. AVANDIA [Concomitant]
  24. ACIPHEX [Concomitant]

REACTIONS (2)
  - CONTUSION [None]
  - RASH [None]
